FAERS Safety Report 8691919 (Version 2)
Quarter: 2013Q4

REPORT INFORMATION
  Report Type: Report from Study
  Country: US (occurrence: US)
  Receive Date: 20120730
  Receipt Date: 20131101
  Transmission Date: 20140711
  Serious: No
  Sender: FDA-Public Use
  Company Number: US-009507513-1207USA003136

PATIENT
  Sex: Female
  Weight: 66.76 kg

DRUGS (1)
  1. IMPLANON [Suspect]
     Dosage: UNK
     Dates: start: 20110303, end: 20120702

REACTIONS (2)
  - Chest pain [Unknown]
  - Headache [Unknown]
